FAERS Safety Report 6924905-2 (Version None)
Quarter: 2010Q3

REPORT INFORMATION
  Report Type: 
  Country: None (occurrence: None)
  Receive Date: 20100816
  Receipt Date: 20100804
  Transmission Date: 20110219
  Serious: Yes (Other)
  Sender: FDA-Public Use
  Company Number: US-PFIZER INC-2010098518

PATIENT

DRUGS (1)
  1. ZARONTIN [Suspect]

REACTIONS (1)
  - ANAEMIA [None]
